FAERS Safety Report 9059564 (Version 1)
Quarter: 2013Q1

REPORT INFORMATION
  Report Type: Spontaneous
  Country: US (occurrence: None)
  Receive Date: 20130205
  Receipt Date: 20130205
  Transmission Date: 20140127
  Serious: Yes (Hospitalization)
  Sender: FDA-Public Use
  Company Number: None

PATIENT
  Sex: Male
  Weight: 114 kg

DRUGS (5)
  1. CYCLOPHOSPHAMIDE [Suspect]
  2. DOXORUBICIN HYDROCHLORIDE [Suspect]
  3. ETOPOSIDE (VP-16) [Suspect]
  4. RITUXIMAB (MOAB C2B8 ANTI CD20, CHIMERIC) [Suspect]
     Dosage: 375 MG/M2 IV INFUSION ON DAY 1 PRIOR TO EPOCH CHEMOTHERAPY
  5. VINCRISTINE SULFATE [Suspect]

REACTIONS (4)
  - White blood cell count decreased [None]
  - Neutrophil count decreased [None]
  - Pyrexia [None]
  - Cough [None]
